FAERS Safety Report 25169020 (Version 1)
Quarter: 2025Q2

REPORT INFORMATION
  Report Type: Spontaneous
  Country: IT (occurrence: IT)
  Receive Date: 20250407
  Receipt Date: 20250407
  Transmission Date: 20250716
  Serious: Yes (Other)
  Sender: MYLAN
  Company Number: None

PATIENT
  Age: 65 Year
  Sex: Male

DRUGS (16)
  1. KETOPROFEN LYSINE [Suspect]
     Active Substance: KETOPROFEN LYSINE
     Indication: Headache
     Dates: start: 20250308, end: 20250308
  2. KETOPROFEN LYSINE [Suspect]
     Active Substance: KETOPROFEN LYSINE
     Route: 048
     Dates: start: 20250308, end: 20250308
  3. KETOPROFEN LYSINE [Suspect]
     Active Substance: KETOPROFEN LYSINE
     Route: 048
     Dates: start: 20250308, end: 20250308
  4. KETOPROFEN LYSINE [Suspect]
     Active Substance: KETOPROFEN LYSINE
     Dates: start: 20250308, end: 20250308
  5. SIMPONI [Concomitant]
     Active Substance: GOLIMUMAB
     Indication: Colitis ulcerative
     Dosage: 100 MILLIGRAM, Q28D
     Dates: start: 20231109, end: 20250313
  6. SIMPONI [Concomitant]
     Active Substance: GOLIMUMAB
     Dosage: 100 MILLIGRAM, Q28D
     Route: 058
     Dates: start: 20231109, end: 20250313
  7. SIMPONI [Concomitant]
     Active Substance: GOLIMUMAB
     Dosage: 100 MILLIGRAM, Q28D
     Route: 058
     Dates: start: 20231109, end: 20250313
  8. SIMPONI [Concomitant]
     Active Substance: GOLIMUMAB
     Dosage: 100 MILLIGRAM, Q28D
     Dates: start: 20231109, end: 20250313
  9. ASACOL [Concomitant]
     Active Substance: MESALAMINE
     Indication: Colitis ulcerative
  10. ASACOL [Concomitant]
     Active Substance: MESALAMINE
     Route: 048
  11. ASACOL [Concomitant]
     Active Substance: MESALAMINE
     Route: 048
  12. ASACOL [Concomitant]
     Active Substance: MESALAMINE
  13. ASACOL [Concomitant]
     Active Substance: MESALAMINE
     Indication: Colitis ulcerative
  14. ASACOL [Concomitant]
     Active Substance: MESALAMINE
     Route: 054
  15. ASACOL [Concomitant]
     Active Substance: MESALAMINE
     Route: 054
  16. ASACOL [Concomitant]
     Active Substance: MESALAMINE

REACTIONS (1)
  - Thrombocytopenic purpura [Unknown]

NARRATIVE: CASE EVENT DATE: 20250308
